FAERS Safety Report 21279060 (Version 1)
Quarter: 2022Q3

REPORT INFORMATION
  Report Type: Spontaneous
  Country: DE (occurrence: DE)
  Receive Date: 20220901
  Receipt Date: 20220901
  Transmission Date: 20221027
  Serious: Yes (Death, Life-Threatening, Other)
  Sender: FDA-Public Use
  Company Number: DE-AMGEN-DEUSP2022146733

PATIENT

DRUGS (6)
  1. FILGRASTIM [Suspect]
     Active Substance: FILGRASTIM
     Indication: Prophylaxis
     Dosage: UNK
     Route: 065
  2. FLUDARABINE [Concomitant]
     Active Substance: FLUDARABINE PHOSPHATE
     Dosage: 15 MILLIGRAM/SQ. METER, BID
  3. CYTARABINE [Concomitant]
     Active Substance: CYTARABINE
     Dosage: 1 GRAM PER SQUARE METRE, BID
  4. MITOXANTRONE [Concomitant]
     Active Substance: MITOXANTRONE HYDROCHLORIDE
     Dosage: 7 MILLIGRAM/SQ. METER
  5. CYCLOPHOSPHAMIDE [Concomitant]
     Active Substance: CYCLOPHOSPHAMIDE
     Dosage: 1 GRAM PER SQUARE METRE
  6. IDARUBICIN [Concomitant]
     Active Substance: IDARUBICIN
     Dosage: 12 MILLIGRAM/SQ. METER

REACTIONS (21)
  - Death [Fatal]
  - Sepsis [Fatal]
  - Hepatic failure [Fatal]
  - Febrile neutropenia [Fatal]
  - Nervous system disorder [Unknown]
  - Graft versus host disease [Fatal]
  - Infection [Fatal]
  - Hepatic enzyme increased [Fatal]
  - Mucosal inflammation [Unknown]
  - Diarrhoea [Unknown]
  - Vomiting [Unknown]
  - Cardiac disorder [Unknown]
  - Blood creatinine increased [Unknown]
  - Renal disorder [Unknown]
  - Skin reaction [Unknown]
  - Myalgia [Unknown]
  - Acute myeloid leukaemia recurrent [Unknown]
  - Vascular device infection [Unknown]
  - Pneumonia [Unknown]
  - Bone marrow failure [Unknown]
  - Therapy partial responder [Unknown]
